FAERS Safety Report 9223567 (Version 2)
Quarter: 2013Q3

REPORT INFORMATION
  Report Type: Spontaneous
  Country: BR (occurrence: BR)
  Receive Date: 20130410
  Receipt Date: 20130910
  Transmission Date: 20140515
  Serious: Yes (Hospitalization, Other)
  Sender: FDA-Public Use
  Company Number: BR-GLAXOSMITHKLINE-A1018966A

PATIENT
  Age: 77 Year
  Sex: Male
  Weight: 58 kg

DRUGS (1)
  1. COMBODART [Suspect]
     Indication: BENIGN PROSTATIC HYPERPLASIA
     Dosage: 1CAP PER DAY
     Route: 048
     Dates: start: 20130206, end: 20130325

REACTIONS (8)
  - Facial bones fracture [Recovered/Resolved]
  - Dizziness [Recovered/Resolved]
  - Fall [Recovered/Resolved]
  - Product quality issue [Unknown]
  - Tooth fracture [Recovered/Resolved]
  - Hypovolaemia [Recovered/Resolved]
  - Fluid intake reduced [Recovered/Resolved]
  - Hypotension [Recovered/Resolved]
